FAERS Safety Report 25317791 (Version 1)
Quarter: 2025Q2

REPORT INFORMATION
  Report Type: Spontaneous
  Country: SA (occurrence: SA)
  Receive Date: 20250515
  Receipt Date: 20250515
  Transmission Date: 20250717
  Serious: Yes (Other)
  Sender: MACLEODS
  Company Number: SA-MACLEODS PHARMA-MAC2019024690

PATIENT

DRUGS (1)
  1. CLOBETASOL [Suspect]
     Active Substance: CLOBETASOL
     Indication: Dermatitis diaper
     Route: 061

REACTIONS (2)
  - Pseudo Cushing^s syndrome [Recovered/Resolved]
  - Incorrect dose administered [Unknown]
